FAERS Safety Report 4838940-1 (Version None)
Quarter: 2005Q4

REPORT INFORMATION
  Report Type: 
  Country: None (occurrence: None)
  Receive Date: 20051024
  Receipt Date: 20050907
  Transmission Date: 20060501
  Serious: Yes (Other)
  Sender: FDA-Public Use
  Company Number: 217408

PATIENT
  Age: 27 Year
  Sex: Female
  Weight: 103.9 kg

DRUGS (9)
  1. XOLAIR [Suspect]
     Indication: ASTHMA
     Dosage: 375 MG, SUBCUTANEOUS
     Route: 058
     Dates: start: 20050829
  2. PREDNISONE [Concomitant]
  3. ADVAIR(SALMETEROL XINAFOATE, FLUTICASONE PROPIONATE) [Concomitant]
  4. SINGULAIR [Concomitant]
  5. FLONASE [Concomitant]
  6. ALBUTEROL (ALBUTEROL,ALBUTEROL SULFATE) [Concomitant]
  7. ZYRTEC (CETIRZINE HYDROCHLORIDE) [Concomitant]
  8. EFFEXOR [Concomitant]
  9. RHINOCORT AQUA (BUDESONIDE) [Concomitant]

REACTIONS (1)
  - ANAPHYLACTIC REACTION [None]
